FAERS Safety Report 25450073 (Version 1)
Quarter: 2025Q2

REPORT INFORMATION
  Report Type: Spontaneous
  Country: IT (occurrence: IT)
  Receive Date: 20250618
  Receipt Date: 20250618
  Transmission Date: 20250717
  Serious: Yes (Hospitalization, Other)
  Sender: AUROBINDO
  Company Number: IT-MINISAL02-1042013

PATIENT
  Age: 35 Year
  Sex: Male

DRUGS (1)
  1. NAPROXEN [Suspect]
     Active Substance: NAPROXEN
     Indication: Headache
     Dosage: 550 MILLIGRAM, TWO TIMES A DAY (550 MG 1 CP OGNI 12 ORE)
     Route: 048
     Dates: start: 20250514, end: 20250516

REACTIONS (3)
  - Drug-induced liver injury [Recovering/Resolving]
  - Cholestasis [Recovering/Resolving]
  - Jaundice [Recovering/Resolving]

NARRATIVE: CASE EVENT DATE: 20250514
